FAERS Safety Report 15389764 (Version 1)
Quarter: 2018Q3

REPORT INFORMATION
  Report Type: Spontaneous
  Country: FR (occurrence: FR)
  Receive Date: 20180917
  Receipt Date: 20180917
  Transmission Date: 20181010
  Serious: Yes (Other)
  Sender: FDA-Public Use
  Company Number: FR-TEVA-2018-FR-955188

PATIENT
  Age: 52 Year
  Sex: Male

DRUGS (1)
  1. IRINOTECAN [Suspect]
     Active Substance: IRINOTECAN
     Indication: NEOPLASM MALIGNANT
     Route: 042
     Dates: start: 20180614

REACTIONS (3)
  - Aphasia [Recovered/Resolved]
  - Speech disorder [Recovered/Resolved]
  - Joint stiffness [Recovered/Resolved with Sequelae]

NARRATIVE: CASE EVENT DATE: 20180614
